FAERS Safety Report 4285338-3 (Version None)
Quarter: 2004Q1

REPORT INFORMATION
  Report Type: 
  Country: None (occurrence: None)
  Receive Date: 20040203
  Receipt Date: 20040203
  Transmission Date: 20041129
  Serious: Yes (Hospitalization)
  Sender: FDA-Public Use
  Company Number: None

PATIENT
  Age: 66 Year
  Sex: Female

DRUGS (14)
  1. ASPIRIN [Suspect]
     Indication: OSTEOARTHRITIS
     Dosage: 81 MG QD + 650 MG AM [X MONTHS]
  2. ASPIRIN [Suspect]
     Indication: PROPHYLAXIS
     Dosage: 81 MG QD + 650 MG AM [X MONTHS]
  3. ALEVE [Suspect]
     Indication: OSTEOARTHRITIS
     Dosage: 220 MG BID-QID [X MONTHS]
  4. DILTIAZEM [Concomitant]
  5. CLONIDINE [Concomitant]
  6. IRON [Concomitant]
  7. FUROSEMIDE [Concomitant]
  8. LOPERAMIDE HCL [Concomitant]
  9. CALCIUM [Concomitant]
  10. PROPOXYPHENE HCL [Concomitant]
  11. APAP TAB [Concomitant]
  12. RANITIDINE [Concomitant]
  13. LEVOTHYROXINE SODIUM [Concomitant]
  14. ALPRAZOLAM [Concomitant]

REACTIONS (3)
  - ABDOMINAL PAIN [None]
  - HAEMOPTYSIS [None]
  - UPPER GASTROINTESTINAL HAEMORRHAGE [None]
